FAERS Safety Report 19362902 (Version 1)
Quarter: 2021Q2

REPORT INFORMATION
  Report Type: Spontaneous
  Country: BR (occurrence: BR)
  Receive Date: 20210603
  Receipt Date: 20210603
  Transmission Date: 20210717
  Serious: Yes (Hospitalization, Other)
  Sender: FDA-Public Use
  Company Number: BR-NOVOPROD-817151

PATIENT
  Age: 21 Year
  Sex: Female
  Weight: 43 kg

DRUGS (3)
  1. LEVOTHYROXINE. [Concomitant]
     Active Substance: LEVOTHYROXINE
     Indication: HYPOTHYROIDISM
     Dosage: 25 ???G, QD
  2. FERROUS SULPHATE [FERROUS SULFATE] [Concomitant]
     Active Substance: FERROUS SULFATE
     Indication: ANAEMIA
     Dosage: UNK ( TWICE DAILY)
  3. INSULATARD HM [Suspect]
     Active Substance: INSULIN HUMAN
     Indication: TYPE 1 DIABETES MELLITUS
     Dosage: UNK (14/0/0/8)
     Route: 065

REACTIONS (5)
  - Blood glucose fluctuation [Unknown]
  - Diabetic ketoacidosis [Unknown]
  - Fatigue [Unknown]
  - Ill-defined disorder [Unknown]
  - Alopecia [Unknown]

NARRATIVE: CASE EVENT DATE: 202105
